FAERS Safety Report 16169506 (Version 1)
Quarter: 2019Q2

REPORT INFORMATION
  Report Type: Spontaneous
  Country: US (occurrence: US)
  Receive Date: 20190408
  Receipt Date: 20190408
  Transmission Date: 20190711
  Serious: Yes (Hospitalization)
  Sender: FDA-Public Use
  Company Number: US-MYLANLABS-2019M1030721

PATIENT
  Age: 21 Year
  Sex: Female

DRUGS (15)
  1. DIMETHYL SULFOXIDE. [Suspect]
     Active Substance: DIMETHYL SULFOXIDE
     Indication: PRODUCT USED FOR UNKNOWN INDICATION
     Dosage: FROM DAYS 8 TO 17
     Route: 042
  2. DACARBAZINE. [Concomitant]
     Active Substance: DACARBAZINE
     Indication: OSTEOSARCOMA
     Dosage: CONTINUOUS IV INFUSION; OVER 5 DAYS
     Route: 041
  3. PHENOBARBITAL. [Concomitant]
     Active Substance: PHENOBARBITAL
     Indication: PRODUCT USED FOR UNKNOWN INDICATION
     Dosage: FROM DAY 7 TO DAY 11
     Route: 041
  4. VANCOMYCIN [Concomitant]
     Active Substance: VANCOMYCIN
     Indication: FEBRILE NEUTROPENIA
     Route: 065
  5. DOXORUBICIN [Suspect]
     Active Substance: DOXORUBICIN
     Indication: OSTEOSARCOMA
     Dosage: CONTINUOUS IV INFUSION; OVER 5 DAYS
     Route: 041
  6. IFOSFAMIDE. [Suspect]
     Active Substance: IFOSFAMIDE
     Indication: OSTEOSARCOMA
     Dosage: CONTINUOUS IV INFUSION; 24G/M 2 OVER 4 DAYS
     Route: 041
  7. MESNA. [Concomitant]
     Active Substance: MESNA
     Indication: OSTEOSARCOMA
     Dosage: 30 G/M 2; CONTINUOUS IV INFUSION OVER 5 DAYS
     Route: 041
  8. ACYCLOVIR                          /00587301/ [Concomitant]
     Active Substance: ACYCLOVIR
     Indication: PROPHYLAXIS
     Route: 065
  9. DIMETHYL SULFOXIDE. [Suspect]
     Active Substance: DIMETHYL SULFOXIDE
     Indication: PRODUCT USED FOR UNKNOWN INDICATION
     Dosage: ON DAYS 6 AND 7
     Route: 048
  10. MORPHINE [Concomitant]
     Active Substance: MORPHINE
     Indication: PAIN
     Route: 065
  11. CIMETIDINE [Concomitant]
     Active Substance: CIMETIDINE
     Indication: GASTRIC DISORDER
     Route: 042
  12. NYSTATIN. [Concomitant]
     Active Substance: NYSTATIN
     Indication: PRODUCT USED FOR UNKNOWN INDICATION
     Route: 065
  13. CEFTAZIDIME. [Concomitant]
     Active Substance: CEFTAZIDIME
     Indication: FEBRILE NEUTROPENIA
     Route: 065
  14. AZTREONAM. [Concomitant]
     Active Substance: AZTREONAM
     Indication: FEBRILE NEUTROPENIA
     Route: 065
  15. METRONIDAZOLE. [Concomitant]
     Active Substance: METRONIDAZOLE
     Indication: FEBRILE NEUTROPENIA
     Route: 065

REACTIONS (18)
  - Accidental overdose [Recovered/Resolved]
  - Abdominal pain [Recovered/Resolved]
  - Platelet count decreased [Recovered/Resolved]
  - Bone marrow disorder [Recovered/Resolved]
  - Haematemesis [Recovered/Resolved]
  - Off label use [Unknown]
  - Hypokalaemia [Recovered/Resolved]
  - Cardiotoxicity [Recovered/Resolved]
  - Gastric disorder [Recovered/Resolved]
  - Febrile neutropenia [Recovered/Resolved]
  - Candida infection [Recovered/Resolved]
  - Product administration error [Recovered/Resolved]
  - Stomatitis [Recovered/Resolved]
  - Blood creatinine increased [Recovered/Resolved]
  - Ejection fraction decreased [Recovered/Resolved]
  - Diarrhoea [Recovered/Resolved]
  - Nausea [Recovered/Resolved]
  - Pain [Recovered/Resolved]
